FAERS Safety Report 9721238 (Version 2)
Quarter: 2013Q4

REPORT INFORMATION
  Report Type: Spontaneous
  Country: US (occurrence: US)
  Receive Date: 20131129
  Receipt Date: 20131218
  Transmission Date: 20140711
  Serious: No
  Sender: FDA-Public Use
  Company Number: US-PFIZER INC-2013339425

PATIENT
  Age: 52 Year
  Sex: Female
  Weight: 54 kg

DRUGS (3)
  1. ESTRING [Suspect]
     Indication: URETHRAL ATROPHY
     Dosage: UNK
     Route: 067
     Dates: start: 2005, end: 2006
  2. ESTRING [Suspect]
     Indication: VULVOVAGINAL DRYNESS
  3. ATENOLOL [Concomitant]
     Indication: HYPERTENSION
     Dosage: UNK

REACTIONS (5)
  - Paraesthesia [Not Recovered/Not Resolved]
  - Nerve injury [Unknown]
  - Bone marrow oedema [Unknown]
  - Bone disorder [Unknown]
  - Osteoarthritis [Unknown]
